FAERS Safety Report 4763613-3 (Version None)
Quarter: 2005Q3

REPORT INFORMATION
  Report Type: 
  Country: None (occurrence: None)
  Receive Date: 20050908
  Receipt Date: 20050902
  Transmission Date: 20060218
  Serious: Yes (Other)
  Sender: FDA-Public Use
  Company Number: PHBS2005JP13056

PATIENT
  Age: 75 Year
  Sex: Female

DRUGS (1)
  1. NEORAL [Suspect]
     Indication: INTERSTITIAL LUNG DISEASE
     Dosage: 50 MG/D
     Route: 048
     Dates: start: 20050822, end: 20050824

REACTIONS (4)
  - COUGH [None]
  - DYSPNOEA [None]
  - PANIC ATTACK [None]
  - PRODUCTIVE COUGH [None]
